FAERS Safety Report 11869714 (Version 2)
Quarter: 2016Q1

REPORT INFORMATION
  Report Type: Spontaneous
  Country: TW (occurrence: TW)
  Receive Date: 20151228
  Receipt Date: 20160318
  Transmission Date: 20160526
  Serious: Yes (Death, Hospitalization)
  Sender: FDA-Public Use
  Company Number: TW-PFIZER INC-2014222194

PATIENT
  Age: 91 Year
  Sex: Female

DRUGS (5)
  1. SUTENT [Suspect]
     Active Substance: SUNITINIB MALATE
     Dosage: 37.5 MG, ONCE DAILY TWO WEEKS ON AND ONE WEEK OFF
     Route: 048
     Dates: start: 201408, end: 201409
  2. SUTENT [Suspect]
     Active Substance: SUNITINIB MALATE
     Dosage: 25 MG, DAILY TEN DAYS ON AND SIX DAYS OFF
     Route: 048
  3. SUTENT [Suspect]
     Active Substance: SUNITINIB MALATE
     Dosage: 25 MG/QD FOR 14 DAYS ON AND 7 DAYS OFF
     Route: 048
     Dates: end: 20151213
  4. SUTENT [Suspect]
     Active Substance: SUNITINIB MALATE
     Dosage: 25 MG, DAILY
     Route: 048
  5. SUTENT [Suspect]
     Active Substance: SUNITINIB MALATE
     Indication: GASTROINTESTINAL STROMAL TUMOUR
     Dosage: 37.5 MG, QD, TWO WEEKS ON AND ONE WEEK OFF
     Route: 048
     Dates: start: 201406, end: 201407

REACTIONS (6)
  - Dysphagia [Unknown]
  - Diarrhoea [Not Recovered/Not Resolved]
  - Nausea [Unknown]
  - Death [Fatal]
  - Mouth ulceration [Not Recovered/Not Resolved]
  - Decreased appetite [Recovering/Resolving]

NARRATIVE: CASE EVENT DATE: 2014
